FAERS Safety Report 9146888 (Version 1)
Quarter: 2013Q1

REPORT INFORMATION
  Report Type: Spontaneous
  Country: US (occurrence: None)
  Receive Date: 20130228
  Receipt Date: 20130228
  Transmission Date: 20140127
  Serious: Yes (Other)
  Sender: FDA-Public Use
  Company Number: None

PATIENT
  Age: 85 Year
  Sex: Male

DRUGS (1)
  1. ZYTIGA [Suspect]
     Dosage: 1000MG QD ORAL
     Route: 048
     Dates: start: 20130131

REACTIONS (2)
  - Feeling abnormal [None]
  - Abnormal behaviour [None]
